FAERS Safety Report 10033578 (Version 1)
Quarter: 2014Q1

REPORT INFORMATION
  Report Type: Spontaneous
  Country: US (occurrence: US)
  Receive Date: 20140325
  Receipt Date: 20140325
  Transmission Date: 20141002
  Serious: No
  Sender: FDA-Public Use
  Company Number: US-BIOGENIDEC-2014BI027330

PATIENT
  Age: 75 Year
  Sex: Male

DRUGS (3)
  1. AVONEX [Suspect]
     Indication: MULTIPLE SCLEROSIS
     Route: 030
     Dates: start: 20130318
  2. LITHIUM CARBONATE [Concomitant]
  3. WELLBUTRIN SR [Concomitant]

REACTIONS (1)
  - Adverse event [Unknown]
